FAERS Safety Report 8962746 (Version 1)
Quarter: 2012Q4

REPORT INFORMATION
  Report Type: 
  Country: JP (occurrence: JP)
  Receive Date: 20121214
  Receipt Date: 20121214
  Transmission Date: 20130627
  Serious: Yes (Other)
  Sender: FDA-Public Use
  Company Number: JP-ASTELLAS-2012JP011609

PATIENT
  Age: 7 Year
  Sex: Female

DRUGS (8)
  1. PROGRAF [Suspect]
     Indication: PROPHYLAXIS AGAINST GRAFT VERSUS HOST DISEASE
     Dosage: UNK
     Route: 065
     Dates: start: 2008
  2. ETOPOSIDE [Concomitant]
     Indication: BONE MARROW CONDITIONING REGIMEN
     Dosage: 1200 mg/m2, Unknown/D
     Route: 065
     Dates: start: 2008
  3. CYCLOPHOSPHAMIDE [Concomitant]
     Indication: BONE MARROW CONDITIONING REGIMEN
     Dosage: 60 mg/kg, bid
     Route: 065
     Dates: start: 2008
  4. METHOTREXATE [Concomitant]
     Indication: PROPHYLAXIS AGAINST GRAFT VERSUS HOST DISEASE
     Dosage: 15 mg/m2, Unknown/D
     Route: 065
     Dates: start: 20081106, end: 20081106
  5. METHOTREXATE [Concomitant]
     Dosage: 10 mg/m2, Unknown/D
     Route: 065
     Dates: start: 20081109, end: 20081117
  6. MICAFUNGIN [Concomitant]
     Indication: ANTIFUNGAL TREATMENT
     Dosage: UNK
     Route: 065
     Dates: start: 2008, end: 200811
  7. MICAFUNGIN [Concomitant]
     Dosage: UNK
     Route: 065
     Dates: start: 200811, end: 20081130
  8. UBENIMEX [Concomitant]
     Indication: MYELODYSPLASTIC SYNDROME
     Route: 048

REACTIONS (2)
  - Drug ineffective [Unknown]
  - Acute graft versus host disease [Unknown]
